FAERS Safety Report 18246199 (Version 1)
Quarter: 2020Q3

REPORT INFORMATION
  Report Type: Spontaneous
  Country: IT (occurrence: IT)
  Receive Date: 20200909
  Receipt Date: 20200909
  Transmission Date: 20201103
  Serious: Yes (Hospitalization)
  Sender: FDA-Public Use
  Company Number: IT-TEVA-2020-IT-1824769

PATIENT
  Age: 8 Year
  Sex: Male

DRUGS (24)
  1. PREDNISONE. [Suspect]
     Active Substance: PREDNISONE
     Indication: VERNAL KERATOCONJUNCTIVITIS
     Dosage: 5 MG/TWICE DAILY (BID)
     Route: 048
     Dates: start: 201703
  2. OMALIZUMAB. [Suspect]
     Active Substance: OMALIZUMAB
     Indication: VERNAL KERATOCONJUNCTIVITIS
     Route: 058
     Dates: start: 201703, end: 201809
  3. BETAMETHASONE. [Concomitant]
     Active Substance: BETAMETHASONE
     Indication: ULCERATIVE KERATITIS
  4. CICLOSPORIN [Suspect]
     Active Substance: CYCLOSPORINE
     Indication: VERNAL KERATOCONJUNCTIVITIS
     Route: 048
  5. MOMETASONE FUROATE. [Suspect]
     Active Substance: MOMETASONE FUROATE
     Indication: CONJUNCTIVITIS
     Dosage: SPRAY, TOPICAL MOMETASONE NASAL SPRAY DURING SPRING AND SUMMER MONTHS
     Route: 061
  6. NEDOCROMIL [Suspect]
     Active Substance: NEDOCROMIL
     Indication: VERNAL KERATOCONJUNCTIVITIS
  7. CETIRIZINE [Suspect]
     Active Substance: CETIRIZINE HYDROCHLORIDE
     Indication: CONJUNCTIVITIS
  8. KETOTIFEN [Suspect]
     Active Substance: KETOTIFEN
     Indication: CONJUNCTIVITIS
     Route: 065
  9. FLUOCINOLONE [Suspect]
     Active Substance: FLUOCINOLONE
     Indication: CONJUNCTIVITIS
     Dosage: LOW?DOSE
     Route: 061
  10. LEVOCETIRIZINE [Suspect]
     Active Substance: LEVOCETIRIZINE
     Indication: CONJUNCTIVITIS
     Route: 065
  11. KETOTIFEN [Suspect]
     Active Substance: KETOTIFEN
     Indication: VERNAL KERATOCONJUNCTIVITIS
     Dosage: ORAL THERAPY TO BE TAKEN 5 DAYS/WEEK
     Route: 048
  12. CICLOSPORIN [Suspect]
     Active Substance: CYCLOSPORINE
     Indication: VERNAL KERATOCONJUNCTIVITIS
     Dosage: ORAL FORMULATION WAS REINTRODUCED 6 DAYS/WEEK FOR WORSENING OF SYMPTOMS
     Route: 048
  13. KETOTIFEN [Suspect]
     Active Substance: KETOTIFEN
     Indication: VERNAL KERATOCONJUNCTIVITIS
     Dosage: EYE DROPS
     Route: 047
  14. CYCLOSPORINE. [Suspect]
     Active Substance: CYCLOSPORINE
     Indication: VERNAL KERATOCONJUNCTIVITIS
     Route: 061
  15. PREDNISONE. [Suspect]
     Active Substance: PREDNISONE
     Indication: VERNAL KERATOCONJUNCTIVITIS
     Dosage: ORAL THERAPY TO BE TAKEN 5 DAYS/WEEK
     Route: 048
  16. PREDNISONE. [Suspect]
     Active Substance: PREDNISONE
     Indication: VERNAL KERATOCONJUNCTIVITIS
     Dosage: REDUCTION OF PREDNISONE TO ALTERNATE DAYS
     Route: 048
  17. BETAMETHASONE. [Concomitant]
     Active Substance: BETAMETHASONE
     Indication: KERATITIS
  18. CETIRIZINE [Suspect]
     Active Substance: CETIRIZINE HYDROCHLORIDE
     Indication: DERMATITIS ATOPIC
     Route: 065
  19. LEVOCETIRIZINE [Suspect]
     Active Substance: LEVOCETIRIZINE
     Indication: CONJUNCTIVAL DISORDER
  20. PREDNISONE. [Suspect]
     Active Substance: PREDNISONE
     Indication: VERNAL KERATOCONJUNCTIVITIS
     Dosage: REDUCED TO ONCE A DAY
     Route: 048
     Dates: start: 2017
  21. NEDOCROMIL [Suspect]
     Active Substance: NEDOCROMIL
     Indication: CONJUNCTIVITIS
     Route: 047
  22. BETAMETHASONE. [Concomitant]
     Active Substance: BETAMETHASONE
     Indication: EYE INFLAMMATION
     Route: 065
  23. CETIRIZINE [Suspect]
     Active Substance: CETIRIZINE HYDROCHLORIDE
     Indication: CONJUNCTIVAL DISORDER
  24. FLUOCINOLONE [Suspect]
     Active Substance: FLUOCINOLONE
     Indication: VERNAL KERATOCONJUNCTIVITIS

REACTIONS (3)
  - Drug ineffective [Unknown]
  - Ocular hypertension [Unknown]
  - Off label use [Unknown]

NARRATIVE: CASE EVENT DATE: 201703
